FAERS Safety Report 6946865 (Version 3)
Quarter: 2017Q2

REPORT INFORMATION
  Report Type: Report from Study
  Country: GB (occurrence: GB)
  Receive Date: 20090320
  Receipt Date: 20170628
  Transmission Date: 20170830
  Serious: Yes (Other)
  Sender: FDA-Public Use
  Company Number: GB-BRISTOL-MYERS SQUIBB COMPANY-14551105

PATIENT
  Age: 45 Year
  Sex: Male

DRUGS (3)
  1. FLUORO URACIL [Suspect]
     Active Substance: FLUOROURACIL
     Indication: COLORECTAL CANCER
     Dosage: ALSO RECEIVED FLUOROURACIL INTRAVENOUSLY ON 16-APR-2008
     Route: 040
     Dates: start: 20080416
  2. CETUXIMAB. [Suspect]
     Active Substance: CETUXIMAB
     Indication: COLORECTAL CANCER
     Dosage: 5MG/ML
     Route: 042
     Dates: start: 20080416
  3. OXALIPLATIN. [Suspect]
     Active Substance: OXALIPLATIN
     Indication: COLORECTAL CANCER
     Dosage: UNK
     Route: 042
     Dates: start: 20080416

REACTIONS (3)
  - Device related thrombosis [Recovered/Resolved]
  - Peripheral swelling [Unknown]
  - Deep vein thrombosis [Unknown]

NARRATIVE: CASE EVENT DATE: 20080426
